FAERS Safety Report 11394191 (Version 2)
Quarter: 2015Q3

REPORT INFORMATION
  Report Type: Spontaneous
  Country: US (occurrence: US)
  Receive Date: 20150819
  Receipt Date: 20150826
  Transmission Date: 20151125
  Serious: Yes (Other)
  Sender: FDA-Public Use
  Company Number: US-JNJFOC-20150809022

PATIENT

DRUGS (1)
  1. TYLENOL PM [Suspect]
     Active Substance: ACETAMINOPHEN\DIPHENHYDRAMINE
     Indication: PRODUCT USED FOR UNKNOWN INDICATION
     Dosage: 80 (UNIT UNSPECIFIED)
     Route: 048

REACTIONS (6)
  - Overdose [Unknown]
  - Brain injury [None]
  - Anxiety [Unknown]
  - Intentional overdose [None]
  - Nervousness [Unknown]
  - Suicide attempt [Unknown]

NARRATIVE: CASE EVENT DATE: 2009
